FAERS Safety Report 6664812-6 (Version None)
Quarter: 2010Q1

REPORT INFORMATION
  Report Type: 
  Country: None (occurrence: None)
  Receive Date: 20100330
  Receipt Date: 20100315
  Transmission Date: 20100710
  Serious: Yes (Other)
  Sender: FDA-Public Use
  Company Number: PD-124

PATIENT

DRUGS (5)
  1. GRANISETRON 34.3 MG IN 52 CM2 PATCH [Suspect]
     Indication: NAUSEA
     Dosage: 1 PATCH APPLIED FOR 6 DAYS
  2. GRANISETRON 34.3 MG IN 52 CM2 PATCH [Suspect]
     Indication: VOMITING
     Dosage: 1 PATCH APPLIED FOR 6 DAYS
  3. HEALTHY PATIENTS (PHASE I PK AND BIOAVAILABILITY/SKIN SENSITIVITY [Concomitant]
  4. CANCER PATIENTS (PHASE II)-SINGLE-DAY REGIMEN OF MODERATE EMETOGENIC C [Concomitant]
  5. (PHASE III)-FIRST CYCLE OF NEW MULTIDAY ME OR HE CHEMO REGIMEN [Concomitant]

REACTIONS (1)
  - CONSTIPATION [None]
